FAERS Safety Report 10413252 (Version 1)
Quarter: 2014Q2

REPORT INFORMATION
  Report Type: Spontaneous
  Country: US (occurrence: None)
  Receive Date: 20140530
  Receipt Date: 20140530
  Transmission Date: 20141212
  Serious: No
  Sender: FDA-Public Use
  Company Number: 226078

PATIENT
  Age: 49 Year
  Sex: Male

DRUGS (3)
  1. PICATO (INGENOL MEBUTATE) (0.015 %, GEL) [Suspect]
     Indication: ACTINIC KERATOSIS
     Dosage: 1 IN 1 DAY?
     Route: 061
     Dates: start: 20140207, end: 20140209
  2. ATENOLOL [Concomitant]
  3. OMEPRAZOLE [Concomitant]

REACTIONS (3)
  - Rash generalised [None]
  - Pain [None]
  - Urticaria [None]
